FAERS Safety Report 7444565-4 (Version None)
Quarter: 2011Q2

REPORT INFORMATION
  Report Type: 
  Country: None (occurrence: None)
  Receive Date: 20110426
  Receipt Date: 20110426
  Transmission Date: 20111010
  Serious: Yes (Death)
  Sender: FDA-Public Use
  Company Number: None

PATIENT
  Age: 85 Year
  Sex: Female
  Weight: 51.7101 kg

DRUGS (4)
  1. DILTIAZEM [Concomitant]
  2. FUROSEMIDE [Concomitant]
  3. DIGOXIN [Concomitant]
  4. PRADAXA [Suspect]
     Indication: ATRIAL FIBRILLATION
     Dosage: 150MG BID PO
     Route: 048
     Dates: start: 20110418, end: 20110423

REACTIONS (4)
  - LOSS OF CONSCIOUSNESS [None]
  - HAEMATEMESIS [None]
  - ABDOMINAL DISCOMFORT [None]
  - HYPOCOAGULABLE STATE [None]
